FAERS Safety Report 9550519 (Version 2)
Quarter: 2021Q3

REPORT INFORMATION
  Report Type: Report from Study
  Country: US (occurrence: US)
  Receive Date: 20130924
  Receipt Date: 20210816
  Transmission Date: 20211014
  Serious: No
  Sender: FDA-Public Use
  Company Number: US-SANOFI-AVENTIS-2013SA026374

PATIENT
  Age: 58 Year
  Sex: Female

DRUGS (6)
  1. TERIFLUNOMIDE. [Suspect]
     Active Substance: TERIFLUNOMIDE
     Dosage: 14 MG, QD
     Route: 048
  2. LIPITOR [Concomitant]
     Active Substance: ATORVASTATIN CALCIUM
     Indication: HYPERTENSION
     Dosage: UNK
  3. TERIFLUNOMIDE. [Suspect]
     Active Substance: TERIFLUNOMIDE
     Dosage: 14 MG, QD
     Route: 048
     Dates: start: 20130301, end: 20130801
  4. TERIFLUNOMIDE. [Suspect]
     Active Substance: TERIFLUNOMIDE
     Dosage: 14 MG, QOD
     Route: 048
  5. TERIFLUNOMIDE. [Suspect]
     Active Substance: TERIFLUNOMIDE
     Dosage: 14 MG, QD
     Route: 048
     Dates: start: 20130227
  6. TERIFLUNOMIDE. [Suspect]
     Active Substance: TERIFLUNOMIDE
     Indication: MULTIPLE SCLEROSIS
     Dosage: 14 MG, QD
     Route: 048

REACTIONS (14)
  - Fatigue [Unknown]
  - Condition aggravated [Unknown]
  - Insomnia [Unknown]
  - Inappropriate schedule of product administration [Not Recovered/Not Resolved]
  - Paraesthesia [Unknown]
  - Discomfort [Unknown]
  - Malaise [Not Recovered/Not Resolved]
  - Osteoporosis [Unknown]
  - Alopecia [Unknown]
  - Product dose omission issue [Unknown]
  - Pain in extremity [Unknown]
  - Alopecia [Recovered/Resolved]
  - Musculoskeletal stiffness [Unknown]
  - Depressed mood [Not Recovered/Not Resolved]

NARRATIVE: CASE EVENT DATE: 201307
